FAERS Safety Report 7113507-3 (Version None)
Quarter: 2010Q4

REPORT INFORMATION
  Report Type: 
  Country: None (occurrence: None)
  Receive Date: 20101119
  Receipt Date: 20101116
  Transmission Date: 20110411
  Serious: No
  Sender: FDA-Public Use
  Company Number: US-PFIZER INC-2010149932

PATIENT
  Sex: Female
  Weight: 68 kg

DRUGS (5)
  1. DEPO-PROVERA [Suspect]
     Indication: CONTRACEPTION
     Dosage: UNK
     Route: 030
     Dates: start: 20100914
  2. ZIAC [Concomitant]
     Indication: HYPERTENSION
     Dosage: 10/6.25 MG, 1X/DAY
     Route: 048
  3. ATROVENT [Concomitant]
     Indication: DYSPNOEA
     Dosage: UNK G, 4X/DAY
  4. ATROVENT [Concomitant]
     Indication: EMPHYSEMA
  5. NORVASC [Concomitant]
     Indication: HYPERTENSION
     Dosage: 5 MG, UNK

REACTIONS (2)
  - MENORRHAGIA [None]
  - METRORRHAGIA [None]
